FAERS Safety Report 10211355 (Version 1)
Quarter: 2014Q2

REPORT INFORMATION
  Report Type: Spontaneous
  Country: US (occurrence: None)
  Receive Date: 20140530
  Receipt Date: 20140530
  Transmission Date: 20141212
  Serious: Yes (Hospitalization)
  Sender: FDA-Public Use
  Company Number: None

PATIENT
  Age: 52 Year
  Sex: Male

DRUGS (6)
  1. JANUVIA [Suspect]
     Indication: TYPE 2 DIABETES MELLITUS
     Route: 048
     Dates: start: 20140501, end: 20140529
  2. TRADJENTA [Suspect]
     Indication: TYPE 2 DIABETES MELLITUS
     Route: 048
     Dates: start: 20140401, end: 20140430
  3. GLIPIZIDE [Concomitant]
  4. LISINOPRIL [Concomitant]
  5. DICYCLOMINE [Concomitant]
  6. ASPIRIN [Concomitant]

REACTIONS (1)
  - Pancreatitis [None]
